FAERS Safety Report 10356831 (Version 1)
Quarter: 2014Q3

REPORT INFORMATION
  Report Type: Spontaneous
  Country: AU (occurrence: AU)
  Receive Date: 20140801
  Receipt Date: 20140801
  Transmission Date: 20150326
  Serious: Yes (Other)
  Sender: FDA-Public Use
  Company Number: PHHY2014AU092243

PATIENT
  Age: 47 Year
  Sex: Female

DRUGS (8)
  1. CICLOSPORIN [Suspect]
     Active Substance: CYCLOSPORINE
     Indication: IMMUNOSUPPRESSION
  2. PREDNISOLONE. [Suspect]
     Active Substance: PREDNISOLONE
     Indication: IMMUNOSUPPRESSION
  3. BASILIXIMAB [Suspect]
     Active Substance: BASILIXIMAB
     Indication: IMMUNOSUPPRESSION
  4. PYRIDOXINE [Concomitant]
     Active Substance: PYRIDOXINE
  5. DITHIAZIDE [Concomitant]
     Active Substance: HYDROCHLOROTHIAZIDE
  6. ERYTHROPOIETIN [Concomitant]
     Active Substance: ERYTHROPOIETIN
  7. MYCOPHENOLATE MOFETIL. [Suspect]
     Active Substance: MYCOPHENOLATE MOFETIL
     Indication: IMMUNOSUPPRESSION
  8. MAGNESIUM PHOSPHATE [Concomitant]
     Active Substance: MAGNESIUM PHOSPHATE, TRIBASIC, PENTAHYDRATE

REACTIONS (3)
  - Renal tubular necrosis [Unknown]
  - Kidney transplant rejection [Unknown]
  - Renal impairment [Not Recovered/Not Resolved]
